FAERS Safety Report 25319351 (Version 3)
Quarter: 2025Q3

REPORT INFORMATION
  Report Type: Report from Study
  Country: EU (occurrence: EU)
  Receive Date: 20250515
  Receipt Date: 20250702
  Transmission Date: 20251020
  Serious: Yes (Hospitalization)
  Sender: MYLAN
  Company Number: EU-DIMERIX BIOSCIENCE PTY LTD-DIM-2025-000008

PATIENT
  Age: 20 Year
  Sex: Female

DRUGS (8)
  1. CANDESARTAN [Suspect]
     Active Substance: CANDESARTAN
     Indication: Focal segmental glomerulosclerosis
     Dosage: 12 MILLIGRAM, BID
     Dates: start: 20240216
  2. EMPAGLIFLOZIN [Concomitant]
     Active Substance: EMPAGLIFLOZIN
     Indication: Focal segmental glomerulosclerosis
     Dosage: 10 MILLIGRAM, QD
     Dates: start: 202107
  3. TORSEMIDE [Concomitant]
     Active Substance: TORSEMIDE
     Indication: Focal segmental glomerulosclerosis
     Dosage: 100 MILLIGRAM, QD
     Dates: start: 202103, end: 20250419
  4. XIPAMIDE [Concomitant]
     Active Substance: XIPAMIDE
     Indication: Focal segmental glomerulosclerosis
     Dosage: 10 MILLIGRAM, QD
     Dates: start: 202107, end: 20250421
  5. EZETIMIBE [Concomitant]
     Active Substance: EZETIMIBE
     Indication: Dyslipidaemia
     Dosage: 10 MILLIGRAM, QD
     Dates: start: 202111
  6. CHOLECALCIFEROL [Concomitant]
     Active Substance: CHOLECALCIFEROL
     Indication: Focal segmental glomerulosclerosis
     Dosage: 20 MILLIGRAM, QD
     Dates: start: 202103
  7. CHOLECALCIFEROL [Concomitant]
     Active Substance: CHOLECALCIFEROL
     Indication: Vitamin supplementation
  8. METAMIZOLE SODIUM [Concomitant]
     Active Substance: METAMIZOLE SODIUM
     Indication: Headache

REACTIONS (2)
  - Gastrointestinal infection [Recovered/Resolved]
  - Hypotension [Recovered/Resolved]

NARRATIVE: CASE EVENT DATE: 20250417
